FAERS Safety Report 5638571-X (Version None)
Quarter: 2008Q1

REPORT INFORMATION
  Report Type: 
  Country: None (occurrence: None)
  Receive Date: 20080226
  Receipt Date: 20070510
  Transmission Date: 20080703
  Serious: No
  Sender: FDA-Public Use
  Company Number: A0650813A

PATIENT
  Age: 25 Year
  Sex: Female

DRUGS (5)
  1. IMITREX [Suspect]
     Indication: MIGRAINE
     Dosage: 6MG AS REQUIRED
     Route: 058
     Dates: start: 20070401
  2. BUTALBITAL [Concomitant]
  3. TOPAMAX [Concomitant]
  4. ESTROSTEP [Concomitant]
  5. RHINOCORT [Concomitant]

REACTIONS (2)
  - BLISTER [None]
  - MALABSORPTION FROM INJECTION SITE [None]
